FAERS Safety Report 20789568 (Version 1)
Quarter: 2022Q2

REPORT INFORMATION
  Report Type: Spontaneous
  Country: US (occurrence: US)
  Receive Date: 20220505
  Receipt Date: 20220505
  Transmission Date: 20220721
  Serious: Yes (Hospitalization, Other)
  Sender: FDA-Public Use
  Company Number: US-MYLANLABS-2022M1031803

PATIENT
  Sex: Female
  Weight: 72.5 kg

DRUGS (3)
  1. CLONIDINE TRANSDERMAL SYSTEM [Suspect]
     Active Substance: CLONIDINE
     Indication: Blood pressure abnormal
     Dosage: 0.1 MILLIGRAM, QD
     Route: 062
     Dates: start: 201803
  2. CLONIDINE TRANSDERMAL SYSTEM [Suspect]
     Active Substance: CLONIDINE
     Dosage: 0.2 MILLIGRAM, QD
     Route: 062
  3. CLONIDINE [Concomitant]
     Active Substance: CLONIDINE
     Indication: Blood pressure abnormal
     Dosage: UNK
     Route: 048

REACTIONS (3)
  - Drug ineffective [Unknown]
  - Transient ischaemic attack [Unknown]
  - Hypertension [Unknown]

NARRATIVE: CASE EVENT DATE: 20190101
